FAERS Safety Report 10256184 (Version 1)
Quarter: 2014Q2

REPORT INFORMATION
  Report Type: Spontaneous
  Country: US (occurrence: US)
  Receive Date: 20140624
  Receipt Date: 20140624
  Transmission Date: 20141212
  Serious: Yes (Other)
  Sender: FDA-Public Use
  Company Number: US-PFIZER INC-2014171914

PATIENT
  Sex: 0

DRUGS (1)
  1. RAPAMUNE [Suspect]
     Indication: LIVER TRANSPLANT
     Dosage: UNK

REACTIONS (3)
  - Hepatic artery thrombosis [Unknown]
  - Neoplasm [Unknown]
  - Off label use [Unknown]
